FAERS Safety Report 9163761 (Version 1)
Quarter: 2013Q1

REPORT INFORMATION
  Report Type: Report from Study
  Country: DE (occurrence: DE)
  Receive Date: 20130314
  Receipt Date: 20130314
  Transmission Date: 20140127
  Serious: Yes (Hospitalization, Other)
  Sender: FDA-Public Use
  Company Number: DE-ACTELION-A-US2012-67712

PATIENT
  Age: 46 Year
  Sex: Female

DRUGS (2)
  1. VENTAVIS [Suspect]
     Indication: PULMONARY ARTERIAL HYPERTENSION
     Dosage: 5 ?G, Q4H
     Route: 055
     Dates: start: 20110321
  2. AMBRISENTAN [Suspect]
     Dosage: UNK

REACTIONS (3)
  - General physical health deterioration [Unknown]
  - Hospitalisation [Unknown]
  - Dyspnoea [Not Recovered/Not Resolved]
